FAERS Safety Report 16703133 (Version 4)
Quarter: 2019Q3

REPORT INFORMATION
  Report Type: Spontaneous
  Country: US (occurrence: US)
  Receive Date: 20190814
  Receipt Date: 20190925
  Transmission Date: 20191004
  Serious: Yes (Hospitalization, Other)
  Sender: FDA-Public Use
  Company Number: US-PFIZER INC-2019346133

PATIENT
  Age: 56 Year
  Sex: Female
  Weight: 63 kg

DRUGS (2)
  1. IBRANCE [Suspect]
     Active Substance: PALBOCICLIB
     Indication: BREAST CANCER METASTATIC
     Dosage: 125 MG, CYCLIC (DAYS 1-28 Q28 DAYS)
     Route: 048
     Dates: start: 20190711, end: 201907
  2. IBRANCE [Suspect]
     Active Substance: PALBOCICLIB
     Dosage: 125 MG, CYCLIC(D1-D21-Q28D)
     Route: 048
     Dates: start: 20190719

REACTIONS (24)
  - Musculoskeletal chest pain [Unknown]
  - Condition aggravated [Unknown]
  - Pyrexia [Unknown]
  - Fall [Unknown]
  - Hypotension [Unknown]
  - Dizziness [Unknown]
  - Urinary tract infection [Unknown]
  - Diarrhoea [Unknown]
  - Contusion [Unknown]
  - Paraesthesia [Unknown]
  - Cough [Unknown]
  - Wound [Unknown]
  - White blood cell count decreased [Unknown]
  - Feeling abnormal [Unknown]
  - Joint stiffness [Unknown]
  - Anaemia [Unknown]
  - Asthenia [Unknown]
  - Dysphagia [Unknown]
  - Bone pain [Unknown]
  - Platelet count decreased [Unknown]
  - Vomiting [Unknown]
  - Limb injury [Unknown]
  - Movement disorder [Unknown]
  - Red blood cell count decreased [Unknown]

NARRATIVE: CASE EVENT DATE: 2019
